FAERS Safety Report 23059366 (Version 4)
Quarter: 2023Q4

REPORT INFORMATION
  Report Type: Spontaneous
  Country: US (occurrence: US)
  Receive Date: 20231012
  Receipt Date: 20231212
  Transmission Date: 20240109
  Serious: No
  Sender: FDA-Public Use
  Company Number: US-PFIZER INC-202300306345

PATIENT
  Age: 3 Year
  Sex: Female
  Weight: 13.605 kg

DRUGS (1)
  1. GENOTROPIN [Suspect]
     Active Substance: SOMATROPIN
     Indication: Short stature
     Dosage: 0.8 MG
     Dates: start: 20230811, end: 20230918

REACTIONS (1)
  - Device failure [Unknown]
